FAERS Safety Report 23301635 (Version 2)
Quarter: 2023Q4

REPORT INFORMATION
  Report Type: Spontaneous
  Country: US (occurrence: US)
  Receive Date: 20231215
  Receipt Date: 20231220
  Transmission Date: 20240109
  Serious: Yes (Other)
  Sender: FDA-Public Use
  Company Number: US-BAYER-2023A177497

PATIENT

DRUGS (1)
  1. AFRIN ALLERGY SINUS NASAL [Suspect]
     Active Substance: OXYMETAZOLINE HYDROCHLORIDE
     Indication: Sinusitis
     Dosage: HAVE BEEN ON IT FOR 10+ YEARS, QOD

REACTIONS (4)
  - Drug dependence [None]
  - Head discomfort [None]
  - Paranasal sinus inflammation [None]
  - Ageusia [None]
